FAERS Safety Report 10501162 (Version 8)
Quarter: 2016Q4

REPORT INFORMATION
  Report Type: Report from Study
  Country: US (occurrence: US)
  Receive Date: 20141007
  Receipt Date: 20161114
  Transmission Date: 20170206
  Serious: Yes (Hospitalization, Other)
  Sender: FDA-Public Use
  Company Number: US-UCBSA-2014013029

PATIENT
  Age: 44 Year
  Sex: Female
  Weight: 82 kg

DRUGS (16)
  1. CERTOLIZUMAB PEGOL [Suspect]
     Active Substance: CERTOLIZUMAB PEGOL
     Dosage: 400 MG, EV 4 WEEKS, EXPIRY DATE: APR-2018, LOT NUMBER: 902511, EXPIRY DATE: FEB-2019
     Route: 058
     Dates: end: 201609
  2. DIPHENHYDRAMINE. [Concomitant]
     Active Substance: DIPHENHYDRAMINE
     Indication: PRODUCT USED FOR UNKNOWN INDICATION
     Dosage: UNK, AS NEEDED (PRN)
     Route: 048
  3. CERTOLIZUMAB PEGOL [Suspect]
     Active Substance: CERTOLIZUMAB PEGOL
     Dosage: 400 MG, EV 2 WEEKS(QOW)
     Route: 058
  4. TIZANIDINE. [Concomitant]
     Active Substance: TIZANIDINE
     Indication: PRODUCT USED FOR UNKNOWN INDICATION
     Dosage: UNK, AS NEEDED (PRN)
     Route: 048
  5. HYDROMORPHONE [Concomitant]
     Active Substance: HYDROMORPHONE
     Indication: PAIN
     Dosage: 2 MG, AS NEEDED (PRN)
     Route: 048
  6. DOXYCYCLINE. [Concomitant]
     Active Substance: DOXYCYCLINE
     Indication: SKIN INFECTION
     Dosage: UNK
     Dates: start: 201609, end: 201609
  7. BOTOX [Concomitant]
     Active Substance: ONABOTULINUMTOXINA
     Indication: HEADACHE
     Dosage: EVERY 10 WEEKS
  8. LIDOCAINE. [Concomitant]
     Active Substance: LIDOCAINE
     Indication: PROCTALGIA
     Dosage: UNK, AS NEEDED (PRN)
     Route: 054
  9. AMBIEN CR [Concomitant]
     Active Substance: ZOLPIDEM TARTRATE
     Indication: SLEEP DISORDER
     Dosage: 12.5 MG, ONCE DAILY (QD)
     Route: 048
  10. OXYCODONE [Concomitant]
     Active Substance: OXYCODONE
     Indication: PAIN
     Dosage: 2.5 MG, AS NEEDED (PRN)
     Route: 048
  11. PROMETHAZINE [Concomitant]
     Active Substance: PROMETHAZINE\PROMETHAZINE HYDROCHLORIDE
     Indication: PRODUCT USED FOR UNKNOWN INDICATION
     Dosage: 25 MG, AS NEEDED (PRN)
     Route: 048
  12. CERTOLIZUMAB PEGOL [Suspect]
     Active Substance: CERTOLIZUMAB PEGOL
     Indication: CROHN^S DISEASE
     Dosage: 400 MG, EV 4 WEEKS
     Route: 058
     Dates: start: 20090303
  13. PREVACID [Concomitant]
     Active Substance: LANSOPRAZOLE
     Indication: GASTRIC DISORDER
     Dosage: 30 MG, ONCE DAILY (QD)
     Route: 048
  14. NIFEDIPINE. [Concomitant]
     Active Substance: NIFEDIPINE
     Indication: PROCTALGIA
     Dosage: UNK, AS NEEDED (PRN)
     Route: 054
  15. ZONISAMIDE. [Concomitant]
     Active Substance: ZONISAMIDE
     Indication: PRODUCT USED FOR UNKNOWN INDICATION
     Dosage: 100 M, ONCE DAILY (QD)
     Route: 048
  16. DICYCLOMINE [Concomitant]
     Active Substance: DICYCLOMINE HYDROCHLORIDE
     Indication: GASTRIC DISORDER
     Dosage: 10 MG, AS NEEDED (PRN)
     Route: 048

REACTIONS (8)
  - Pyrexia [Not Recovered/Not Resolved]
  - Off label use [Unknown]
  - Cough [Not Recovered/Not Resolved]
  - Nasopharyngitis [Not Recovered/Not Resolved]
  - Skin infection [Recovered/Resolved]
  - Abortion [Not Recovered/Not Resolved]
  - Pregnancy [Unknown]
  - Crohn^s disease [Recovering/Resolving]

NARRATIVE: CASE EVENT DATE: 20140724
